FAERS Safety Report 9665147 (Version 1)
Quarter: 2013Q4

REPORT INFORMATION
  Report Type: Spontaneous
  Country: CN (occurrence: CN)
  Receive Date: 20131101
  Receipt Date: 20131101
  Transmission Date: 20140711
  Serious: Yes (Other)
  Sender: FDA-Public Use
  Company Number: PHHY2013CN123763

PATIENT
  Age: 79 Year
  Sex: Male
  Weight: 60 kg

DRUGS (1)
  1. TEGRETOL [Suspect]
     Indication: POST HERPETIC NEURALGIA
     Dosage: 0.1 G, TID
     Route: 048
     Dates: start: 20120628, end: 20120629

REACTIONS (2)
  - Delirium [Recovered/Resolved]
  - Hyponatraemia [Recovered/Resolved]
